FAERS Safety Report 11318241 (Version 3)
Quarter: 2016Q1

REPORT INFORMATION
  Report Type: Report from Study
  Country: CO (occurrence: CO)
  Receive Date: 20150728
  Receipt Date: 20160202
  Transmission Date: 20160525
  Serious: Yes (Hospitalization)
  Sender: FDA-Public Use
  Company Number: PHHY2015CO090550

PATIENT
  Sex: Female
  Weight: 72 kg

DRUGS (2)
  1. SANDOSTATIN LAR DEPOT [Suspect]
     Active Substance: OCTREOTIDE ACETATE
     Dosage: 40 MG, QMO, MONTHLY
     Route: 065
     Dates: start: 20151227
  2. SANDOSTATIN LAR DEPOT [Suspect]
     Active Substance: OCTREOTIDE ACETATE
     Indication: NEUROENDOCRINE TUMOUR
     Dosage: 40 MG, QMO, MONTHLY
     Route: 030
     Dates: start: 20131123

REACTIONS (8)
  - Apathy [Unknown]
  - Diarrhoea [Unknown]
  - Dyspnoea [Unknown]
  - Vomiting [Unknown]
  - Arthralgia [Unknown]
  - Abdominal pain upper [Unknown]
  - Hypocalcaemia [Unknown]
  - Dizziness [Unknown]
